FAERS Safety Report 5809383-9 (Version None)
Quarter: 2008Q3

REPORT INFORMATION
  Report Type: 
  Country: None (occurrence: None)
  Receive Date: 20080714
  Receipt Date: 20080711
  Transmission Date: 20090109
  Serious: Yes (Other)
  Sender: FDA-Public Use
  Company Number: PHEH2001US06806

PATIENT
  Sex: Male
  Weight: 56.9 kg

DRUGS (3)
  1. ICL670A ICL+ [Suspect]
     Indication: THALASSAEMIA BETA
     Dosage: 20MG/KG
     Route: 048
     Dates: start: 20010724, end: 20010801
  2. HUMALOG [Concomitant]
     Indication: TYPE 1 DIABETES MELLITUS
  3. HUMULIN R [Concomitant]
     Indication: TYPE 1 DIABETES MELLITUS

REACTIONS (1)
  - RETINOPATHY [None]
